FAERS Safety Report 7605430-2 (Version None)
Quarter: 2011Q3

REPORT INFORMATION
  Report Type: 
  Country: None (occurrence: None)
  Receive Date: 20110705
  Receipt Date: 20110620
  Transmission Date: 20111222
  Serious: Yes (Other)
  Sender: FDA-Public Use
  Company Number: GB-ACCORD-009657

PATIENT
  Sex: Male

DRUGS (3)
  1. TACROLIMUS [Suspect]
     Indication: TUBULOINTERSTITIAL NEPHRITIS AND UVEITIS SYNDROME
  2. MYCOPHENOLATE MOFETIL [Suspect]
     Indication: TUBULOINTERSTITIAL NEPHRITIS AND UVEITIS SYNDROME
  3. PREDNISOLONE [Suspect]
     Indication: TUBULOINTERSTITIAL NEPHRITIS AND UVEITIS SYNDROME

REACTIONS (2)
  - TUBULOINTERSTITIAL NEPHRITIS AND UVEITIS SYNDROME [None]
  - DISEASE RECURRENCE [None]
